FAERS Safety Report 10573273 (Version 1)
Quarter: 2014Q4

REPORT INFORMATION
  Report Type: Spontaneous
  Country: US (occurrence: None)
  Receive Date: 20141031
  Receipt Date: 20141031
  Transmission Date: 20150529
  Serious: Yes (Other)
  Sender: FDA-Public Use
  Company Number: 1981325

PATIENT
  Age: 72 Year
  Sex: Female

DRUGS (1)
  1. LIDOCAINE HCL [Suspect]
     Active Substance: LIDOCAINE HYDROCHLORIDE
     Route: 008
     Dates: start: 20131015

REACTIONS (2)
  - Respiratory failure [None]
  - Drug effect increased [None]

NARRATIVE: CASE EVENT DATE: 20131015
